FAERS Safety Report 23224293 (Version 4)
Quarter: 2024Q1

REPORT INFORMATION
  Report Type: Report from Study
  Country: US (occurrence: US)
  Receive Date: 20231124
  Receipt Date: 20240325
  Transmission Date: 20240409
  Serious: No
  Sender: FDA-Public Use
  Company Number: US-ACADIA PHARMACEUTICALS INC.-ACA-2023-TRF-004610

PATIENT
  Sex: Female

DRUGS (5)
  1. DAYBUE [Suspect]
     Active Substance: TROFINETIDE
     Indication: Rett syndrome
     Dosage: 9 MILLILITER, BID
     Route: 048
  2. DAYBUE [Suspect]
     Active Substance: TROFINETIDE
     Dosage: 30 MILLILITER, BID
     Route: 048
  3. DAYBUE [Suspect]
     Active Substance: TROFINETIDE
     Dosage: 15 MILLILITER, BID
     Route: 048
  4. DAYBUE [Suspect]
     Active Substance: TROFINETIDE
     Dosage: 30 MILLILITER, BID
     Route: 048
  5. DAYBUE [Suspect]
     Active Substance: TROFINETIDE
     Dosage: 24 MILLILITER, BID
     Route: 048

REACTIONS (7)
  - Adverse drug reaction [Not Recovered/Not Resolved]
  - Drooling [Not Recovered/Not Resolved]
  - Drooling [Not Recovered/Not Resolved]
  - Underdose [Not Recovered/Not Resolved]
  - Diarrhoea [Recovering/Resolving]
  - Diarrhoea [Recovering/Resolving]
  - Diarrhoea [Not Recovered/Not Resolved]
